FAERS Safety Report 19583648 (Version 1)
Quarter: 2021Q3

REPORT INFORMATION
  Report Type: Spontaneous
  Country: AU (occurrence: AU)
  Receive Date: 20210720
  Receipt Date: 20210720
  Transmission Date: 20211014
  Serious: Yes (Hospitalization, Other)
  Sender: FDA-Public Use
  Company Number: AU-OTSUKA-2021_020055

PATIENT
  Age: 81 Year
  Sex: Male

DRUGS (6)
  1. SODIUM CHLORIDE. [Concomitant]
     Active Substance: SODIUM CHLORIDE
     Indication: HYPONATRAEMIA
     Dosage: 1200 MG
     Route: 065
  2. CLOPIDOGREL [Concomitant]
     Active Substance: CLOPIDOGREL BISULFATE
     Indication: ANTI-PLATELET ANTIBODY
     Dosage: 75 MG
     Route: 048
     Dates: start: 20210608
  3. METOPROLOL. [Concomitant]
     Active Substance: METOPROLOL
     Indication: CARDIAC FAILURE
     Dosage: 25 MG
     Route: 065
  4. TOLVAPTAN [Suspect]
     Active Substance: TOLVAPTAN
     Indication: BLOOD SODIUM ABNORMAL
     Dosage: 7.5 MG, 3 TIMES A WEEK
     Route: 065
     Dates: start: 20210608
  5. NEORAL [Suspect]
     Active Substance: CYCLOSPORINE
     Indication: PRODUCT USED FOR UNKNOWN INDICATION
     Dosage: 50 MG, QD
     Route: 065
  6. MIRABEGRON [Concomitant]
     Active Substance: MIRABEGRON
     Indication: BENIGN PROSTATIC HYPERPLASIA
     Dosage: 25 MG
     Route: 065

REACTIONS (3)
  - Blood sodium decreased [Recovering/Resolving]
  - Product prescribing error [Unknown]
  - Delirium [Unknown]

NARRATIVE: CASE EVENT DATE: 20210608
